FAERS Safety Report 7026697-8 (Version None)
Quarter: 2010Q3

REPORT INFORMATION
  Report Type: 
  Country: None (occurrence: None)
  Receive Date: 20100930
  Receipt Date: 20100917
  Transmission Date: 20110219
  Serious: Yes (Other)
  Sender: FDA-Public Use
  Company Number: CA-1183446

PATIENT

DRUGS (1)
  1. BSS(BSS) INTRAOCULAR SOLUTION LOT3 169073F IRRIGATION SOLUTION [Suspect]
     Dosage: INTRAOCULAR
     Route: 031

REACTIONS (1)
  - FLAT ANTERIOR CHAMBER OF EYE [None]
